FAERS Safety Report 13274147 (Version 1)
Quarter: 2017Q1

REPORT INFORMATION
  Report Type: Spontaneous
  Country: US (occurrence: US)
  Receive Date: 20170227
  Receipt Date: 20170227
  Transmission Date: 20170428
  Serious: No
  Sender: FDA-Public Use
  Company Number: US-ASTRAZENECA-2016SF21483

PATIENT
  Age: 68 Year
  Sex: Male
  Weight: 97.1 kg

DRUGS (25)
  1. LEVOTHYROXINE. [Concomitant]
     Active Substance: LEVOTHYROXINE
     Indication: THYROID DISORDER
     Route: 048
  2. LIPITOR [Concomitant]
     Active Substance: ATORVASTATIN CALCIUM
     Indication: BLOOD CHOLESTEROL ABNORMAL
     Route: 048
     Dates: start: 20161118
  3. FOLIC ACID. [Concomitant]
     Active Substance: FOLIC ACID
     Route: 048
  4. PLAVIX [Concomitant]
     Active Substance: CLOPIDOGREL BISULFATE
  5. ASPIRIN. [Concomitant]
     Active Substance: ASPIRIN
     Indication: ANTICOAGULANT THERAPY
     Route: 048
     Dates: start: 2005
  6. ALTACE [Concomitant]
     Active Substance: RAMIPRIL
     Indication: BLOOD PRESSURE ABNORMAL
     Route: 048
     Dates: start: 2003
  7. VITAMIN B/B12 [Concomitant]
     Route: 048
  8. COQ 10 [Concomitant]
     Active Substance: UBIDECARENONE
     Route: 048
  9. ZINC. [Concomitant]
     Active Substance: ZINC
     Route: 048
  10. BRILINTA [Suspect]
     Active Substance: TICAGRELOR
     Indication: ACUTE CORONARY SYNDROME
     Route: 048
     Dates: start: 20161118
  11. FINASTERIDE. [Concomitant]
     Active Substance: FINASTERIDE
     Indication: PROSTATIC DISORDER
     Route: 048
     Dates: start: 2007
  12. NORVASC [Concomitant]
     Active Substance: AMLODIPINE BESYLATE
     Indication: BLOOD PRESSURE ABNORMAL
     Route: 048
  13. BENICAR [Concomitant]
     Active Substance: OLMESARTAN MEDOXOMIL
     Indication: BLOOD PRESSURE ABNORMAL
     Route: 048
     Dates: start: 2003
  14. VITAMIN C [Concomitant]
     Active Substance: ASCORBIC ACID
     Route: 048
  15. MULTIVITAMIN [Concomitant]
     Active Substance: VITAMINS
     Route: 048
  16. BRILINTA [Suspect]
     Active Substance: TICAGRELOR
     Indication: STENT PLACEMENT
     Route: 048
     Dates: start: 20161118
  17. LEVOTHYROXINE. [Concomitant]
     Active Substance: LEVOTHYROXINE
     Indication: THYROID DISORDER
     Route: 048
  18. BETACAROTENE [Concomitant]
     Active Substance: .BETA.-CAROTENE
     Route: 048
  19. VITAMIN D [Concomitant]
     Active Substance: CHOLECALCIFEROL
     Route: 048
  20. TOPROL XL [Suspect]
     Active Substance: METOPROLOL SUCCINATE
     Indication: PROPHYLAXIS
     Route: 048
     Dates: start: 2003
  21. FAMOTIDINE. [Concomitant]
     Active Substance: FAMOTIDINE
     Indication: GASTROOESOPHAGEAL REFLUX DISEASE
     Route: 048
     Dates: start: 2005
  22. CALCIUM [Concomitant]
     Active Substance: CALCIUM
     Route: 048
  23. VITAMIN K2 [Concomitant]
     Active Substance: MENAQUINONE 6
     Route: 048
  24. SELENIUM [Concomitant]
     Active Substance: SELENIUM
     Route: 048
  25. MILK THISTLE [Concomitant]
     Active Substance: MILK THISTLE
     Route: 048

REACTIONS (9)
  - Prostatomegaly [Unknown]
  - Gingival pain [Recovering/Resolving]
  - Pain in extremity [Recovered/Resolved]
  - Gingival erythema [Recovering/Resolving]
  - Fall [Recovered/Resolved]
  - Autoimmune thyroiditis [Not Recovered/Not Resolved]
  - Dizziness [Unknown]
  - Epistaxis [Recovered/Resolved]
  - Gingival blister [Recovering/Resolving]

NARRATIVE: CASE EVENT DATE: 2005
